FAERS Safety Report 5308060-0 (Version None)
Quarter: 2007Q2

REPORT INFORMATION
  Report Type: 
  Country: None (occurrence: None)
  Receive Date: 20070426
  Receipt Date: 20070103
  Transmission Date: 20071010
  Serious: Yes (Death, Other)
  Sender: FDA-Public Use
  Company Number: US-JNJFOC-20041103698

PATIENT
  Sex: Male
  Weight: 99.79 kg

DRUGS (8)
  1. DURAGESIC-100 [Suspect]
     Route: 062
  2. DURAGESIC-100 [Suspect]
     Route: 062
  3. DURAGESIC-100 [Suspect]
     Indication: PAIN
     Route: 062
  4. HYDROMORPHONE HCL [Concomitant]
     Route: 048
  5. HYDROMORPHONE HCL [Concomitant]
     Route: 048
  6. HYDROMORPHONE HCL [Concomitant]
     Indication: BREAKTHROUGH PAIN
     Dosage: SIX 2 MG TABLETS IN LESS THAN 24 HOURS
     Route: 048
  7. CANNABIS [Concomitant]
  8. ALCOHOL [Concomitant]

REACTIONS (5)
  - DEVICE LEAKAGE [None]
  - DRUG ABUSER [None]
  - DRUG TOXICITY [None]
  - OFF LABEL USE [None]
  - VOMITING [None]
